FAERS Safety Report 8242922-X (Version None)
Quarter: 2012Q1

REPORT INFORMATION
  Report Type: 
  Country: None (occurrence: None)
  Receive Date: 20120329
  Receipt Date: 20120329
  Transmission Date: 20120608
  Serious: No
  Sender: FDA-Public Use
  Company Number: None

PATIENT
  Sex: Male
  Weight: 27.7 kg

DRUGS (2)
  1. CYCLOSPORINE [Suspect]
     Indication: NEUROPATHY PERIPHERAL
     Dosage: 120 MG
     Route: 048
     Dates: start: 20120301, end: 20120317
  2. CYCLOSPORINE [Suspect]
     Indication: APLASTIC ANAEMIA
     Dosage: 120 MG
     Route: 048
     Dates: start: 20120301, end: 20120317

REACTIONS (2)
  - PRODUCT SUBSTITUTION ISSUE [None]
  - DRUG LEVEL BELOW THERAPEUTIC [None]
